FAERS Safety Report 15616751 (Version 1)
Quarter: 2018Q4

REPORT INFORMATION
  Report Type: Spontaneous
  Country: ES (occurrence: ES)
  Receive Date: 20181114
  Receipt Date: 20181114
  Transmission Date: 20190205
  Serious: Yes (Other)
  Sender: FDA-Public Use
  Company Number: ES-JNJFOC-20181110344

PATIENT
  Age: 51 Year
  Sex: Male

DRUGS (1)
  1. TRABECTEDIN [Suspect]
     Active Substance: TRABECTEDIN
     Indication: LIPOSARCOMA
     Route: 042

REACTIONS (2)
  - Superior vena cava syndrome [Unknown]
  - Extravasation [Unknown]
